FAERS Safety Report 9549990 (Version 2)
Quarter: 2013Q4

REPORT INFORMATION
  Report Type: Report from Study
  Country: US (occurrence: US)
  Receive Date: 20130924
  Receipt Date: 20131010
  Transmission Date: 20140711
  Serious: Yes (Congenital Anomaly)
  Sender: FDA-Public Use
  Company Number: US-VIIV HEALTHCARE LIMITED-A1035172B

PATIENT
  Sex: 0

DRUGS (4)
  1. EPZICOM [Suspect]
     Indication: ANTIRETROVIRAL THERAPY
     Route: 064
  2. PREZISTA [Suspect]
     Indication: ANTIRETROVIRAL THERAPY
     Route: 064
  3. KALETRA [Suspect]
     Indication: ANTIRETROVIRAL THERAPY
     Route: 064
  4. NORVIR [Suspect]
     Indication: ANTIRETROVIRAL THERAPY
     Route: 064

REACTIONS (6)
  - Congenital hydrocephalus [Unknown]
  - Congenital intestinal malformation [Unknown]
  - Congenital hepatobiliary anomaly [Unknown]
  - Congenital central nervous system anomaly [Unknown]
  - Jaundice neonatal [Unknown]
  - Foetal exposure during pregnancy [Unknown]
